FAERS Safety Report 9479226 (Version 2)
Quarter: 2013Q3

REPORT INFORMATION
  Report Type: Spontaneous
  Country: DE (occurrence: DE)
  Receive Date: 20130827
  Receipt Date: 20130910
  Transmission Date: 20140515
  Serious: Yes (Hospitalization)
  Sender: FDA-Public Use
  Company Number: DE-B.I. PHARMACEUTICALS,INC./RIDGEFIELD-2013-BI-26206DE

PATIENT
  Age: 87 Year
  Sex: Male

DRUGS (3)
  1. PRADAXA [Suspect]
     Dosage: 220 MG
     Dates: start: 20130418, end: 20130812
  2. SIMVASTATIN [Concomitant]
  3. FLUVASTATIN [Concomitant]

REACTIONS (3)
  - Cerebrovascular accident [Unknown]
  - Cerebral ischaemia [Unknown]
  - Intracardiac thrombus [Unknown]
